FAERS Safety Report 12665590 (Version 3)
Quarter: 2016Q4

REPORT INFORMATION
  Report Type: Spontaneous
  Country: US (occurrence: US)
  Receive Date: 20160818
  Receipt Date: 20161004
  Transmission Date: 20170207
  Serious: No
  Sender: FDA-Public Use
  Company Number: US-SHIRE-US201610520

PATIENT
  Sex: Female
  Weight: 81.63 kg

DRUGS (5)
  1. ADDERALL XR [Suspect]
     Active Substance: AMPHETAMINE ASPARTATE\AMPHETAMINE SULFATE\DEXTROAMPHETAMINE SACCHARATE\DEXTROAMPHETAMINE SULFATE
     Indication: ATTENTION DEFICIT/HYPERACTIVITY DISORDER
  2. MORPHINE [Concomitant]
     Active Substance: MORPHINE
     Indication: BACK PAIN
     Dosage: UNK, UNKNOWN
     Route: 048
  3. ADDERALL XR [Suspect]
     Active Substance: AMPHETAMINE ASPARTATE\AMPHETAMINE SULFATE\DEXTROAMPHETAMINE SACCHARATE\DEXTROAMPHETAMINE SULFATE
     Indication: CHRONIC FATIGUE SYNDROME
  4. TENORMIN [Concomitant]
     Active Substance: ATENOLOL
     Indication: MITRAL VALVE PROLAPSE
     Dosage: 50 MG, 1X/DAY:QD
     Route: 048
     Dates: end: 2015
  5. ADDERALL XR [Suspect]
     Active Substance: AMPHETAMINE ASPARTATE\AMPHETAMINE SULFATE\DEXTROAMPHETAMINE SACCHARATE\DEXTROAMPHETAMINE SULFATE
     Indication: DEPRESSION
     Dosage: 30 MG, 1X/DAY:QD
     Route: 048
     Dates: start: 2015, end: 2016

REACTIONS (13)
  - Wrong technique in product usage process [Recovered/Resolved]
  - Palpitations [Recovered/Resolved]
  - Mitral valve prolapse [Recovered/Resolved]
  - Burning mouth syndrome [Recovered/Resolved]
  - Drug effect prolonged [Recovered/Resolved]
  - Drug effect decreased [Recovered/Resolved]
  - Condition aggravated [Recovered/Resolved]
  - Back disorder [Recovered/Resolved]
  - Energy increased [Recovered/Resolved]
  - Blood pressure increased [Recovered/Resolved]
  - Insomnia [Recovered/Resolved]
  - Abnormal loss of weight [Not Recovered/Not Resolved]
  - Drug administered to patient of inappropriate age [Recovered/Resolved]

NARRATIVE: CASE EVENT DATE: 2014
